FAERS Safety Report 10064714 (Version 1)
Quarter: 2014Q2

REPORT INFORMATION
  Report Type: Spontaneous
  Country: FR (occurrence: FR)
  Receive Date: 20140408
  Receipt Date: 20140408
  Transmission Date: 20141212
  Serious: Yes (Life-Threatening, Hospitalization, Congenital Anomaly)
  Sender: FDA-Public Use
  Company Number: FR-SA-2014SA038497

PATIENT
  Age: 1 Day
  Sex: Male
  Weight: 3.2 kg

DRUGS (4)
  1. DAONIL [Suspect]
     Indication: FOETAL EXPOSURE DURING PREGNANCY
     Route: 064
     Dates: start: 20120115, end: 20120215
  2. METFORMIN [Suspect]
     Indication: FOETAL EXPOSURE DURING PREGNANCY
     Route: 064
     Dates: start: 20120115, end: 20120215
  3. INEGY [Suspect]
     Indication: FOETAL EXPOSURE DURING PREGNANCY
     Route: 064
     Dates: start: 20120115, end: 20120215
  4. COTAREG [Concomitant]
     Indication: HYPERTENSION
     Route: 064
     Dates: start: 20120115, end: 20120215

REACTIONS (1)
  - Transposition of the great vessels [Recovered/Resolved]
